FAERS Safety Report 5610544-2 (Version None)
Quarter: 2008Q1

REPORT INFORMATION
  Report Type: 
  Country: None (occurrence: None)
  Receive Date: 20080201
  Receipt Date: 20080125
  Transmission Date: 20080703
  Serious: Yes (Death)
  Sender: FDA-Public Use
  Company Number: US-JNJFOC-20070205697

PATIENT
  Sex: Female
  Weight: 88 kg

DRUGS (7)
  1. DURAGESIC-100 [Suspect]
     Indication: MIGRAINE
     Route: 062
  2. DURAGESIC-100 [Suspect]
     Indication: PAIN
     Route: 062
  3. DIPHENHYDRAMINE HCL [Suspect]
     Indication: DRUG USE FOR UNKNOWN INDICATION
  4. LORAZEPAM [Concomitant]
  5. ALPRAZOLAM [Concomitant]
  6. PAROXETINE [Concomitant]
  7. VALIUM [Concomitant]

REACTIONS (2)
  - DEVICE FAILURE [None]
  - DRUG TOXICITY [None]
